FAERS Safety Report 7576026-6 (Version None)
Quarter: 2011Q2

REPORT INFORMATION
  Report Type: 
  Country: None (occurrence: None)
  Receive Date: 20110628
  Receipt Date: 20091031
  Transmission Date: 20111010
  Serious: Yes (Hospitalization, Other)
  Sender: FDA-Public Use
  Company Number: US-BAYER-200937883NA

PATIENT
  Age: 70 Year
  Sex: Male
  Weight: 127 kg

DRUGS (18)
  1. TRASYLOL [Suspect]
     Dosage: 100 ML LOADING DOSE
     Route: 042
     Dates: start: 20040618, end: 20040618
  2. TOPROL-XL [Concomitant]
  3. PROTAMINE SULFATE [Concomitant]
     Dosage: 700 MG
     Route: 042
     Dates: start: 20040618
  4. NITROGLYCERIN [Concomitant]
     Dosage: UNK
     Dates: start: 20040618
  5. INSULIN [Concomitant]
     Dosage: 10 UNITS
     Route: 042
     Dates: start: 20040618
  6. BENADRYL [Concomitant]
     Dosage: 50 MG
     Route: 042
     Dates: start: 20040618
  7. TRASYLOL [Suspect]
     Dosage: 50 ML/HOUR
     Route: 042
     Dates: start: 20040618, end: 20040618
  8. HYDROCHLOROTHIAZIDE [Concomitant]
  9. PROTAMINE SULFATE [Concomitant]
     Dosage: 600 MG
     Route: 042
     Dates: start: 20040618
  10. ANCEF [Concomitant]
     Route: 042
  11. LIPITOR [Concomitant]
  12. HEPARIN [Concomitant]
     Dosage: 40,000 UNITS
     Route: 042
     Dates: start: 20040618
  13. HEPARIN [Concomitant]
     Dosage: 10,000 UNITS
     Route: 042
     Dates: start: 20040618
  14. LEVOPHED [Concomitant]
     Dosage: UNK
     Route: 042
     Dates: start: 20040618
  15. OPTIRAY 300 [Concomitant]
     Dosage: 215 CC
     Route: 042
     Dates: start: 20040608
  16. RED BLOOD CELLS [Concomitant]
     Dosage: 4 UNITS
     Route: 042
     Dates: start: 20040618
  17. TRASYLOL [Suspect]
     Indication: PRODUCT USED FOR UNKNOWN INDICATION
     Dosage: 1 ML TEST DOSE
     Route: 042
     Dates: start: 20040618, end: 20040618
  18. TRICOR [Concomitant]

REACTIONS (12)
  - RENAL IMPAIRMENT [None]
  - EMOTIONAL DISTRESS [None]
  - UNEVALUABLE EVENT [None]
  - RENAL INJURY [None]
  - CEREBROVASCULAR ACCIDENT [None]
  - RENAL FAILURE [None]
  - ANXIETY [None]
  - FEAR [None]
  - INJURY [None]
  - MULTI-ORGAN FAILURE [None]
  - PAIN [None]
  - STRESS [None]
